FAERS Safety Report 6260747-1 (Version None)
Quarter: 2009Q3

REPORT INFORMATION
  Report Type: 
  Country: None (occurrence: None)
  Receive Date: 20090706
  Receipt Date: 20090619
  Transmission Date: 20100115
  Serious: Yes (Hospitalization)
  Sender: FDA-Public Use
  Company Number: 2008AL012005

PATIENT
  Age: 66 Year
  Sex: Female

DRUGS (1)
  1. DIGOXIN [Suspect]
     Dosage: PO
     Route: 048

REACTIONS (8)
  - DYSPNOEA [None]
  - GENERAL PHYSICAL HEALTH DETERIORATION [None]
  - HEART RATE IRREGULAR [None]
  - HYPOTENSION [None]
  - MULTIPLE INJURIES [None]
  - SICK SINUS SYNDROME [None]
  - UNEVALUABLE EVENT [None]
  - VISUAL FIELD DEFECT [None]
